FAERS Safety Report 18916903 (Version 1)
Quarter: 2021Q1

REPORT INFORMATION
  Report Type: Spontaneous
  Country: US (occurrence: US)
  Receive Date: 20210219
  Receipt Date: 20210219
  Transmission Date: 20210420
  Serious: No
  Sender: FDA-Public Use
  Company Number: US-GLAXOSMITHKLINE-US2021038400

PATIENT
  Sex: Female

DRUGS (2)
  1. FLOVENT HFA [Suspect]
     Active Substance: FLUTICASONE PROPIONATE
     Indication: PRODUCT USED FOR UNKNOWN INDICATION
     Dosage: UNK
  2. ALBUTEROL. [Suspect]
     Active Substance: ALBUTEROL
     Indication: PRODUCT USED FOR UNKNOWN INDICATION
     Dosage: UNK, 90 MCG, 18G/200

REACTIONS (7)
  - Wheezing [Recovered/Resolved]
  - Product dose omission issue [Unknown]
  - Device use error [Unknown]
  - Carpal tunnel syndrome [Unknown]
  - Product storage error [Unknown]
  - Physiotherapy [Unknown]
  - Dyspnoea [Recovered/Resolved]
